FAERS Safety Report 9290366 (Version 4)
Quarter: 2013Q3

REPORT INFORMATION
  Report Type: Spontaneous
  Country: US (occurrence: US)
  Receive Date: 20130515
  Receipt Date: 20130717
  Transmission Date: 20140515
  Serious: Yes (Hospitalization)
  Sender: FDA-Public Use
  Company Number: US-VERTEX PHARMACEUTICALS INC-2013-006015

PATIENT
  Age: 52 Year
  Sex: Female
  Weight: 79 kg

DRUGS (4)
  1. INCIVEK [Suspect]
     Indication: HEPATITIS C
     Dosage: 750 MG, TID
     Route: 048
     Dates: start: 20130430, end: 20130529
  2. RIBAVIRIN [Suspect]
     Indication: HEPATITIS C
     Dosage: 600MG QAM AND 400MG QPM
     Route: 048
     Dates: start: 20130430, end: 201305
  3. RIBAVIRIN [Suspect]
     Dosage: 1 DF, BID
     Route: 048
     Dates: end: 20130529
  4. PEGASYS [Suspect]
     Indication: HEPATITIS C
     Dosage: 180 ?G, QW
     Route: 058
     Dates: start: 20130430, end: 20130529

REACTIONS (11)
  - Anaemia [Not Recovered/Not Resolved]
  - Photophobia [Not Recovered/Not Resolved]
  - Tremor [Recovered/Resolved]
  - Chills [Recovered/Resolved]
  - Glossodynia [Not Recovered/Not Resolved]
  - Oral pain [Not Recovered/Not Resolved]
  - Stomatitis [Recovered/Resolved]
  - Oral mucosal blistering [Not Recovered/Not Resolved]
  - Tongue discolouration [Not Recovered/Not Resolved]
  - Dry mouth [Not Recovered/Not Resolved]
  - Fatigue [Not Recovered/Not Resolved]
